FAERS Safety Report 17238041 (Version 1)
Quarter: 2020Q1

REPORT INFORMATION
  Report Type: Spontaneous
  Country: US (occurrence: US)
  Receive Date: 20200106
  Receipt Date: 20200106
  Transmission Date: 20200409
  Serious: No
  Sender: FDA-Public Use
  Company Number: US-PACIRA-201900128

PATIENT
  Age: 38 Year
  Sex: Female
  Weight: 55.9 kg

DRUGS (1)
  1. EXPAREL [Suspect]
     Active Substance: BUPIVACAINE
     Indication: PRODUCT USED FOR UNKNOWN INDICATION
     Dosage: UNK

REACTIONS (5)
  - Eye pruritus [Unknown]
  - Ocular hyperaemia [Unknown]
  - Accidental exposure to product [Recovered/Resolved]
  - Ocular discomfort [Unknown]
  - Exposure during pregnancy [Recovered/Resolved]
